FAERS Safety Report 6315433-6 (Version None)
Quarter: 2009Q3

REPORT INFORMATION
  Report Type: 
  Country: None (occurrence: None)
  Receive Date: 20090819
  Receipt Date: 20090807
  Transmission Date: 20100115
  Serious: Yes (Disabling, Other)
  Sender: FDA-Public Use
  Company Number: GB-PFIZER INC-2009251641

PATIENT
  Age: 40 Year

DRUGS (3)
  1. SULFASALAZINE [Suspect]
     Indication: PSORIATIC ARTHROPATHY
     Dosage: 500 MG, 2X/DAY
     Route: 048
     Dates: start: 20090101
  2. ACETAMINOPHEN W/ CODEINE [Concomitant]
     Indication: CONTUSION
     Dosage: UNK
     Dates: start: 20090420, end: 20090430
  3. DICLOFENAC [Concomitant]
     Indication: PSORIATIC ARTHROPATHY
     Dosage: 75 MG, 3X/DAY
     Dates: start: 20081010

REACTIONS (1)
  - ERECTILE DYSFUNCTION [None]
